FAERS Safety Report 5504974-7 (Version None)
Quarter: 2007Q4

REPORT INFORMATION
  Report Type: 
  Country: None (occurrence: None)
  Receive Date: 20071102
  Receipt Date: 20071019
  Transmission Date: 20080405
  Serious: Yes (Hospitalization, Other)
  Sender: FDA-Public Use
  Company Number: JP-ELI_LILLY_AND_COMPANY-JP200710007115

PATIENT
  Sex: Male

DRUGS (17)
  1. PEMETREXED [Suspect]
     Indication: PLEURAL MESOTHELIOMA MALIGNANT
     Dosage: 930 MG, OTHER
     Route: 042
     Dates: start: 20070418, end: 20070515
  2. CISPLATIN [Suspect]
     Indication: PLEURAL MESOTHELIOMA MALIGNANT
     Dosage: 140 MG, DAILY (1/D)
     Route: 042
     Dates: start: 20070418, end: 20070515
  3. CISPLATIN [Suspect]
     Dosage: 100 MG, DAILY (1/D)
     Route: 042
     Dates: start: 20070515, end: 20070515
  4. FOLIAMIN [Concomitant]
     Dosage: 0.5 MG, DAILY (1/D)
     Route: 048
     Dates: start: 20070411, end: 20070611
  5. HYDROXOCOBALAMIN ACETATE [Concomitant]
     Dosage: 1 MG, DAILY (1/D)
     Route: 030
     Dates: start: 20070411, end: 20070411
  6. THYRADIN S [Concomitant]
     Indication: SECONDARY HYPOTHYROIDISM
     Dosage: 50 UG, DAILY (1/D)
     Route: 048
  7. MUCODYNE [Concomitant]
     Dosage: 750 MG, UNK
     Route: 048
  8. MAGMITT [Concomitant]
     Dosage: 330 MG, 3/D
     Route: 048
  9. TERNELIN [Concomitant]
     Dosage: 1 MG, 3/D
     Route: 048
  10. CATLEP [Concomitant]
     Dosage: 1 D/F, UNK
     Route: 062
  11. GENTACIN [Concomitant]
     Dosage: 2 G, UNK
     Route: 062
     Dates: start: 20070421, end: 20070425
  12. GATIFLOXACIN [Concomitant]
     Dosage: 400 MG, UNK
     Route: 048
     Dates: start: 20070427, end: 20070429
  13. GLYSENNID [Concomitant]
     Dosage: 12 MG, DAILY (1/D)
     Route: 048
     Dates: start: 20070502
  14. LENDORMIN [Concomitant]
     Dosage: 0.25 MG, DAILY (1/D)
     Route: 048
     Dates: start: 20070514
  15. LOXONIN [Concomitant]
     Dosage: 60 MG, 3/D
     Route: 048
     Dates: start: 20070518
  16. RINDERON [Concomitant]
     Dosage: 4 MG, UNK
     Route: 042
     Dates: start: 20070418, end: 20070515
  17. KYTRIL [Concomitant]
     Dosage: 3 MG, UNK
     Route: 042
     Dates: start: 20070418, end: 20070515

REACTIONS (3)
  - ANAEMIA [None]
  - PLEURAL INFECTION [None]
  - PLEURISY [None]
